FAERS Safety Report 10163050 (Version 1)
Quarter: 2014Q2

REPORT INFORMATION
  Report Type: Spontaneous
  Country: ES (occurrence: ES)
  Receive Date: 20140509
  Receipt Date: 20140509
  Transmission Date: 20141212
  Serious: Yes (Hospitalization)
  Sender: FDA-Public Use
  Company Number: PHHY2014ES054190

PATIENT
  Age: 53 Year
  Sex: Female

DRUGS (8)
  1. METHOTREXATE [Suspect]
     Indication: RHEUMATOID ARTHRITIS
     Dosage: 10 MG
     Route: 048
  2. FOLIC ACID [Concomitant]
  3. HYDROXYCHLOROQUINE [Concomitant]
  4. IBUPROFEN [Concomitant]
  5. PREDNISONE [Concomitant]
  6. SIMVASTATIN [Concomitant]
  7. LEVOTHYROXINE [Concomitant]
  8. OMEPRAZOLE [Concomitant]

REACTIONS (24)
  - Hypoproteinaemia [Recovered/Resolved]
  - Odynophagia [Recovered/Resolved]
  - Pulmonary toxicity [Recovered/Resolved]
  - Hypokalaemia [Recovered/Resolved]
  - Toxicity to various agents [Unknown]
  - Hepatotoxicity [Recovered/Resolved]
  - Gamma-glutamyltransferase increased [Recovered/Resolved]
  - Renal failure [Recovered/Resolved]
  - Immunosuppression [Recovered/Resolved]
  - Herpes virus infection [Recovered/Resolved]
  - Lymphadenopathy [Recovered/Resolved]
  - Skin lesion [Recovered/Resolved]
  - Blister [Recovered/Resolved]
  - Skin mass [Recovered/Resolved]
  - Erythema [Recovered/Resolved]
  - Haematemesis [Recovered/Resolved]
  - Mouth haemorrhage [Recovered/Resolved]
  - Mouth ulceration [Recovered/Resolved]
  - Anaemia [Recovered/Resolved]
  - Thrombocytopenia [Recovered/Resolved]
  - Leukopenia [Recovered/Resolved]
  - Pyrexia [Recovered/Resolved]
  - Pancytopenia [Recovered/Resolved]
  - Incorrect drug administration duration [Unknown]
